FAERS Safety Report 9530837 (Version 1)
Quarter: 2013Q3

REPORT INFORMATION
  Report Type: Spontaneous
  Country: US (occurrence: None)
  Receive Date: 20130916
  Receipt Date: 20130916
  Transmission Date: 20140515
  Serious: Yes (Hospitalization)
  Sender: FDA-Public Use
  Company Number: None

PATIENT
  Age: 80 Year
  Sex: Male
  Weight: 73.4 kg

DRUGS (13)
  1. CYCLOPHOSPHAMIDE [Suspect]
     Dosage: 750 MG/M2/D=DOSE X?2.09 M2=1,600 MG/DOSE
  2. DOXORUBICIN HYDROCHLORIDE [Suspect]
     Dosage: 50 MG/M2/DOSE X 2.09 M2-100 MG/DOSE
  3. RITUXIMAB [Suspect]
     Dosage: 375 MG/M2/DOSE X 2.09 M2=780 MG/DOSE
  4. VINCRISTINE SULFATE [Suspect]
     Dosage: 1 MG/M2/DOSE X 2 M2=2 MG/DOSE, LAST DOSE GIVEN
  5. FIBERTAB [Concomitant]
  6. GUAIFENESIN [Concomitant]
  7. METRONIDAZOLE [Concomitant]
  8. NEULASTA [Concomitant]
  9. SODIUM CHLORIDE [Concomitant]
  10. VANCOCIN [Concomitant]
  11. FLUDROCORTISONE [Concomitant]
  12. MIDODRINE [Concomitant]
  13. MIRTAZAPINE [Concomitant]

REACTIONS (8)
  - Pneumonia [None]
  - Dehydration [None]
  - Hypotension [None]
  - Diarrhoea [None]
  - Hypokalaemia [None]
  - Confusional state [None]
  - Agitation [None]
  - Aspiration [None]
